FAERS Safety Report 23488668 (Version 2)
Quarter: 2024Q2

REPORT INFORMATION
  Report Type: Spontaneous
  Country: US (occurrence: US)
  Receive Date: 20240206
  Receipt Date: 20240408
  Transmission Date: 20240715
  Serious: No
  Sender: FDA-Public Use
  Company Number: US-BRISTOL-MYERS SQUIBB COMPANY-2024-019352

PATIENT
  Age: 79 Year
  Sex: Female
  Weight: 72.12 kg

DRUGS (1)
  1. REVLIMID [Suspect]
     Active Substance: LENALIDOMIDE
     Indication: Plasma cell myeloma
     Route: 048
     Dates: start: 20240101

REACTIONS (4)
  - Rash macular [Not Recovered/Not Resolved]
  - Diarrhoea [Recovering/Resolving]
  - Constipation [Recovering/Resolving]
  - Product use issue [Unknown]
